FAERS Safety Report 8001382-4 (Version None)
Quarter: 2011Q4

REPORT INFORMATION
  Report Type: 
  Country: None (occurrence: None)
  Receive Date: 20111222
  Receipt Date: 20111213
  Transmission Date: 20120403
  Serious: Yes (Life-Threatening)
  Sender: FDA-Public Use
  Company Number: GB-JNJFOC-20111206332

PATIENT
  Age: 42 Year
  Weight: 81.8 kg

DRUGS (5)
  1. LANSOPRAZOLE [Concomitant]
     Route: 048
  2. ALENDRONATE SODIUM [Concomitant]
     Route: 048
  3. FOLIC ACID [Concomitant]
     Route: 048
  4. REMICADE [Suspect]
     Indication: CROHN'S DISEASE
     Route: 042
     Dates: start: 20111027, end: 20111027
  5. ATORVASTATIN [Concomitant]
     Route: 048

REACTIONS (2)
  - FLUSHING [None]
  - PRURITUS [None]
